FAERS Safety Report 20532783 (Version 1)
Quarter: 2022Q1

REPORT INFORMATION
  Report Type: Spontaneous
  Country: US (occurrence: None)
  Receive Date: 20220301
  Receipt Date: 20220301
  Transmission Date: 20220423
  Serious: Yes (Other)
  Sender: FDA-Public Use
  Company Number: None

PATIENT
  Age: 65 Year
  Sex: Male
  Weight: 73.48 kg

DRUGS (1)
  1. LIDOCAINE HYDROCHLORIDE [Suspect]
     Active Substance: LIDOCAINE HYDROCHLORIDE
     Indication: Oral pain
     Dates: start: 20210318

REACTIONS (4)
  - Salivary hypersecretion [None]
  - Obstructive airways disorder [None]
  - Dyspnoea [None]
  - Pharyngeal swelling [None]

NARRATIVE: CASE EVENT DATE: 20210301
